FAERS Safety Report 9729528 (Version 3)
Quarter: 2015Q3

REPORT INFORMATION
  Report Type: Spontaneous
  Country: US (occurrence: US)
  Receive Date: 20131204
  Receipt Date: 20150804
  Transmission Date: 20151125
  Serious: No
  Sender: FDA-Public Use
  Company Number: US-GILEAD-2009-0021617

PATIENT
  Age: 82 Year
  Sex: Female
  Weight: 81.65 kg

DRUGS (20)
  1. LETAIRIS [Suspect]
     Active Substance: AMBRISENTAN
     Indication: PULMONARY ARTERIAL HYPERTENSION
     Route: 048
     Dates: start: 20090416
  2. DILTIA XT [Concomitant]
     Active Substance: DILTIAZEM HYDROCHLORIDE
  3. HYDROCHLOROTHIAZIDE/OLMESARTAN MEDOXOMIL [Concomitant]
  4. FOSAMAX [Concomitant]
     Active Substance: ALENDRONATE SODIUM
  5. ATENOLOL. [Concomitant]
     Active Substance: ATENOLOL
  6. LIPITOR [Concomitant]
     Active Substance: ATORVASTATIN CALCIUM
  7. ECOTRIN [Concomitant]
     Active Substance: ASPIRIN
  8. IMURAN [Concomitant]
     Active Substance: AZATHIOPRINE
  9. CALTRATE [Concomitant]
     Active Substance: CALCIUM CARBONATE
  10. CARDURA [Concomitant]
     Active Substance: DOXAZOSIN MESYLATE
  11. HYDROCHLOROTHIAZIDE. [Concomitant]
     Active Substance: HYDROCHLOROTHIAZIDE
  12. VITAMIN C [Concomitant]
     Active Substance: ASCORBIC ACID
  13. TYLENOL 8 HR [Concomitant]
     Active Substance: ACETAMINOPHEN
  14. CALCIUM WITH VITAMIN D [Concomitant]
     Active Substance: CALCIUM\VITAMIN D
  15. SIMVASTATIN. [Concomitant]
     Active Substance: SIMVASTATIN
  16. LASIX [Concomitant]
     Active Substance: FUROSEMIDE
  17. HIDEAWAY OXYGEN SYSTEM [Concomitant]
  18. DAILY MULTIVITAMIN [Concomitant]
     Active Substance: VITAMINS
  19. ACETYLCYSTEINE. [Concomitant]
     Active Substance: ACETYLCYSTEINE
  20. PREDNISONE. [Concomitant]
     Active Substance: PREDNISONE

REACTIONS (4)
  - Oedema peripheral [Recovered/Resolved]
  - Swelling [Unknown]
  - Malaise [Unknown]
  - Dyspnoea [Recovered/Resolved]

NARRATIVE: CASE EVENT DATE: 20090403
